FAERS Safety Report 4887489-9 (Version None)
Quarter: 2006Q1

REPORT INFORMATION
  Report Type: 
  Country: None (occurrence: None)
  Receive Date: 20060118
  Receipt Date: 20060105
  Transmission Date: 20060701
  Serious: Yes (Hospitalization, Other)
  Sender: FDA-Public Use
  Company Number: 2006005956

PATIENT
  Sex: Female

DRUGS (1)
  1. MEDROL [Suspect]
     Indication: ASTHMA
     Dosage: ORAL
     Route: 048

REACTIONS (3)
  - OSTEOPOROTIC FRACTURE [None]
  - RIB FRACTURE [None]
  - SPINAL FRACTURE [None]
